FAERS Safety Report 18873971 (Version 1)
Quarter: 2021Q1

REPORT INFORMATION
  Report Type: Spontaneous
  Country: US (occurrence: US)
  Receive Date: 20210210
  Receipt Date: 20210210
  Transmission Date: 20210420
  Serious: No
  Sender: FDA-Public Use
  Company Number: US-GILEAD-2021-0516686

PATIENT
  Sex: Male

DRUGS (2)
  1. VEMLIDY [Suspect]
     Active Substance: TENOFOVIR ALAFENAMIDE FUMARATE
     Indication: ACUTE HEPATITIS B
     Dosage: TAKE 1 TABLET BY MOUTH ONCE A DAY AS DIRECTED
     Route: 065
  2. VEMLIDY [Suspect]
     Active Substance: TENOFOVIR ALAFENAMIDE FUMARATE
     Dosage: TAKE 1 TABLET BY MOUTH ONCE A DAY AS DIRECTED
     Route: 065

REACTIONS (1)
  - Product dose omission issue [Unknown]
